FAERS Safety Report 9058866 (Version 1)
Quarter: 2013Q1

REPORT INFORMATION
  Report Type: Spontaneous
  Country: US (occurrence: US)
  Receive Date: 20130211
  Receipt Date: 20130211
  Transmission Date: 20140127
  Serious: Yes (Hospitalization)
  Sender: FDA-Public Use
  Company Number: US-ELI_LILLY_AND_COMPANY-US201301010600

PATIENT
  Sex: Female

DRUGS (1)
  1. FORTEO [Suspect]
     Indication: OSTEOPOROSIS
     Dosage: UNK, QD

REACTIONS (6)
  - Cardiac disorder [Unknown]
  - Loss of consciousness [Unknown]
  - Diplopia [Unknown]
  - Vision blurred [Unknown]
  - Dizziness [Unknown]
  - Feeling abnormal [Unknown]
